FAERS Safety Report 9382890 (Version 1)
Quarter: 2013Q3

REPORT INFORMATION
  Report Type: Spontaneous
  Country: FR (occurrence: FR)
  Receive Date: 20130703
  Receipt Date: 20130703
  Transmission Date: 20140515
  Serious: Yes (Hospitalization, Disabling, Other)
  Sender: FDA-Public Use
  Company Number: FR-BAXTER-2013BAX024378

PATIENT
  Age: 66 Year
  Sex: Male

DRUGS (8)
  1. SEVOFLURANE [Suspect]
     Indication: PRODUCT USED FOR UNKNOWN INDICATION
     Route: 065
     Dates: start: 20130131, end: 20130131
  2. NORADRENALINE [Suspect]
     Indication: PRODUCT USED FOR UNKNOWN INDICATION
     Dosage: 0.8-1 MG/HR
     Route: 042
     Dates: start: 20130131, end: 20130131
  3. HEPARIN SODIUM [Suspect]
     Indication: PRODUCT USED FOR UNKNOWN INDICATION
     Route: 042
     Dates: start: 20130131, end: 20130131
  4. SUFENTANIL MERCK [Suspect]
     Indication: PRODUCT USED FOR UNKNOWN INDICATION
     Route: 065
     Dates: start: 20130131, end: 20130131
  5. HYPNOMIDATE [Suspect]
     Indication: PRODUCT USED FOR UNKNOWN INDICATION
     Route: 065
     Dates: start: 20130131, end: 20130131
  6. NIMBEX [Suspect]
     Indication: PRODUCT USED FOR UNKNOWN INDICATION
     Route: 065
     Dates: start: 20130131, end: 20130131
  7. PROPOFOL LIPURO [Suspect]
     Indication: PRODUCT USED FOR UNKNOWN INDICATION
     Route: 042
     Dates: start: 20130131
  8. AUGMENTIN [Suspect]
     Indication: PRODUCT USED FOR UNKNOWN INDICATION
     Route: 065
     Dates: start: 20130131, end: 20130131

REACTIONS (8)
  - Gastrointestinal necrosis [Recovered/Resolved with Sequelae]
  - Haemodynamic instability [Unknown]
  - Hypovolaemia [Unknown]
  - Sepsis [Unknown]
  - Metabolic acidosis [Unknown]
  - Atrial fibrillation [Unknown]
  - Ascites [Unknown]
  - Abdominal pain [Unknown]
